FAERS Safety Report 4325925-7 (Version None)
Quarter: 2004Q1

REPORT INFORMATION
  Report Type: 
  Country: None (occurrence: None)
  Receive Date: 20040322
  Receipt Date: 20031125
  Transmission Date: 20041129
  Serious: No
  Sender: FDA-Public Use
  Company Number: US-JNJFOC-20031200102

PATIENT
  Age: 16 Year
  Sex: Female
  Weight: 49.8957 kg

DRUGS (1)
  1. ORTHO TRI-CYCLEN LO [Suspect]
     Indication: DYSMENORRHOEA
     Dosage: 1 DOSE (S), 1 IN 1 DAY, ORAL
     Route: 048

REACTIONS (4)
  - ERYTHEMA NODOSUM [None]
  - GINGIVAL SWELLING [None]
  - PAIN IN EXTREMITY [None]
  - PHARYNGITIS STREPTOCOCCAL [None]
